FAERS Safety Report 21891840 (Version 5)
Quarter: 2023Q2

REPORT INFORMATION
  Report Type: Spontaneous
  Country: US (occurrence: US)
  Receive Date: 20230120
  Receipt Date: 20230518
  Transmission Date: 20230721
  Serious: Yes (Other)
  Sender: FDA-Public Use
  Company Number: US-BAYER-2023P003068

PATIENT
  Age: 21 Year
  Sex: Male

DRUGS (3)
  1. JIVI [Suspect]
     Active Substance: DAMOCTOCOG ALFA PEGOL
     Indication: Factor VIII deficiency
     Dosage: INFUSE ~ 3000 UNITS (+/-10%) INTRAVENOUSLY EVERY THIRD DAY (TOTAL OF 10 DOSES)
     Route: 042
  2. JIVI [Suspect]
     Active Substance: DAMOCTOCOG ALFA PEGOL
     Indication: Factor VIII deficiency
     Dosage: 2 DF, ONCE (TO TREAT THE BLEEDING)
     Route: 042
  3. JIVI [Suspect]
     Active Substance: DAMOCTOCOG ALFA PEGOL
     Indication: Factor VIII deficiency
     Dosage: 2 DF, ONCE, TO TREAT RIGHT ELBOW BLEED AND RIGHT WRIST BLEED

REACTIONS (4)
  - Haemarthrosis [Recovered/Resolved]
  - Haemarthrosis [Recovered/Resolved]
  - Haemarthrosis [Recovered/Resolved]
  - Haemarthrosis [None]

NARRATIVE: CASE EVENT DATE: 20230112
